FAERS Safety Report 8594852-1 (Version None)
Quarter: 2012Q3

REPORT INFORMATION
  Report Type: 
  Country: None (occurrence: None)
  Receive Date: 20120815
  Receipt Date: 20120808
  Transmission Date: 20120928
  Serious: Yes (Other)
  Sender: FDA-Public Use
  Company Number: CA-JNJFOC-20120606268

PATIENT
  Age: 28 Year
  Sex: Female

DRUGS (2)
  1. HEPARIN [Concomitant]
     Indication: EMBOLISM VENOUS
  2. XARELTO [Suspect]
     Indication: DEEP VEIN THROMBOSIS
     Dosage: DOSE REPOORTED ONLYU AS ^DAILY^
     Route: 048

REACTIONS (1)
  - PULMONARY EMBOLISM [None]
